FAERS Safety Report 6631662-6 (Version None)
Quarter: 2010Q1

REPORT INFORMATION
  Report Type: 
  Country: None (occurrence: None)
  Receive Date: 20100312
  Receipt Date: 20100302
  Transmission Date: 20100710
  Serious: Yes (Death, Hospitalization)
  Sender: FDA-Public Use
  Company Number: FR-WYE-H13401410

PATIENT
  Age: 81 Year
  Sex: Female

DRUGS (7)
  1. CORDARONE [Suspect]
     Indication: ARRHYTHMIA
     Route: 048
  2. SERESTA [Concomitant]
     Indication: ANXIETY
  3. STABLON [Suspect]
     Indication: DEPRESSION
     Route: 048
  4. PREVISCAN [Suspect]
     Indication: ATRIAL FIBRILLATION
     Route: 048
     Dates: end: 20081211
  5. NEXIUM [Suspect]
     Route: 048
  6. DIFFU K [Concomitant]
     Indication: HYPOKALAEMIA
  7. LASILIX [Suspect]
     Indication: HYPERTENSION
     Route: 048

REACTIONS (2)
  - DEATH [None]
  - INTERNATIONAL NORMALISED RATIO INCREASED [None]
